FAERS Safety Report 4498057-5 (Version None)
Quarter: 2004Q4

REPORT INFORMATION
  Report Type: 
  Country: None (occurrence: None)
  Receive Date: 20041109
  Receipt Date: 20041109
  Transmission Date: 20050328
  Serious: Yes (Hospitalization, Other)
  Sender: FDA-Public Use
  Company Number: None

PATIENT
  Age: 32 Year
  Sex: Male
  Weight: 79.3795 kg

DRUGS (1)
  1. VIOXX [Suspect]
     Indication: JOINT INJURY
     Dosage: 1 DAILY ORAL
     Route: 048
     Dates: start: 19990209, end: 20031018

REACTIONS (4)
  - HEADACHE [None]
  - HEART RATE INCREASED [None]
  - HYPERTENSION [None]
  - VERTIGO [None]
